FAERS Safety Report 8799058 (Version 1)
Quarter: 2012Q4

REPORT INFORMATION
  Report Type: 
  Country: US (occurrence: US)
  Receive Date: 20120920
  Receipt Date: 20120920
  Transmission Date: 20130627
  Serious: Yes (Hospitalization, Other)
  Sender: FDA-Public Use
  Company Number: US-009507513-2010SP048873

PATIENT

DRUGS (7)
  1. NUVARING [Suspect]
     Indication: CONTRACEPTION
     Dates: start: 200802, end: 200809
  2. PROPOXYPHENE [Concomitant]
     Dates: start: 200801, end: 200810
  3. EFFEXOR XR [Concomitant]
     Dosage: 150 mg, QD
  4. FLEXERIL [Concomitant]
     Dosage: UNK UNK, PRN
  5. ALBUTEROL [Concomitant]
     Dosage: UNK UNK, PRN
  6. TYLENOL [Concomitant]
     Dosage: UNK UNK, PRN
  7. EXCEDRIN (ACETAMINOPHEN (+) ASPIRIN (+) CAFFEINE) [Concomitant]
     Dosage: UNK UNK, PRN

REACTIONS (8)
  - Pulmonary embolism [Recovered/Resolved]
  - Hypercoagulation [Unknown]
  - Drug hypersensitivity [Not Recovered/Not Resolved]
  - Headache [Not Recovered/Not Resolved]
  - Depression [Unknown]
  - Abdominal pain [Not Recovered/Not Resolved]
  - Nausea [Recovered/Resolved]
  - Vomiting [Recovered/Resolved]
